FAERS Safety Report 8872497 (Version 1)
Quarter: 2012Q4

REPORT INFORMATION
  Report Type: 
  Country: US (occurrence: US)
  Receive Date: 20121029
  Receipt Date: 20121029
  Transmission Date: 20130627
  Serious: Yes (Other)
  Sender: FDA-Public Use
  Company Number: US-FRI-1000039129

PATIENT
  Age: 49 Year
  Sex: Female

DRUGS (2)
  1. ARMOUR THYROID [Suspect]
     Indication: THYROIDECTOMY
     Dosage: 60 mg
     Route: 048
     Dates: start: 20120921
  2. LORAZEPAM [Concomitant]
     Indication: ANXIETY

REACTIONS (5)
  - Impaired gastric emptying [Unknown]
  - Blood pressure increased [Not Recovered/Not Resolved]
  - Paraesthesia [Not Recovered/Not Resolved]
  - Blood thyroid stimulating hormone increased [Not Recovered/Not Resolved]
  - Dyspnoea [Not Recovered/Not Resolved]
